FAERS Safety Report 17818802 (Version 1)
Quarter: 2020Q2

REPORT INFORMATION
  Report Type: Report from Study
  Country: US (occurrence: US)
  Receive Date: 20200522
  Receipt Date: 20200522
  Transmission Date: 20200714
  Serious: No
  Sender: FDA-Public Use
  Company Number: NVSC2020US139905

PATIENT
  Sex: Female

DRUGS (1)
  1. OMNITROPE [Suspect]
     Active Substance: SOMATROPIN
     Indication: PRODUCT USED FOR UNKNOWN INDICATION
     Dosage: UNK
     Route: 065
     Dates: end: 201909

REACTIONS (6)
  - Musculoskeletal stiffness [Unknown]
  - Headache [Unknown]
  - Tonsillar disorder [Unknown]
  - Torticollis [Unknown]
  - Oropharyngeal pain [Unknown]
  - Depression [Unknown]
